FAERS Safety Report 7578050-6 (Version None)
Quarter: 2011Q2

REPORT INFORMATION
  Report Type: 
  Country: None (occurrence: None)
  Receive Date: 20110628
  Receipt Date: 20110106
  Transmission Date: 20111010
  Serious: Yes (Hospitalization, Other)
  Sender: FDA-Public Use
  Company Number: US-BAYER-201036034NA

PATIENT
  Age: 24 Year
  Sex: Female
  Weight: 108.84 kg

DRUGS (5)
  1. CLOMID [Concomitant]
     Indication: INFERTILITY
     Dosage: UNK
     Dates: end: 20050701
  2. SKELAXIN [Concomitant]
     Indication: MUSCLE STRAIN
  3. YASMIN [Suspect]
     Indication: PRODUCT USED FOR UNKNOWN INDICATION
     Route: 048
     Dates: start: 20050601, end: 20050901
  4. GLUCOPHAGE [Concomitant]
  5. MOBIC [Concomitant]
     Indication: MUSCLE STRAIN

REACTIONS (3)
  - PAIN IN EXTREMITY [None]
  - DEEP VEIN THROMBOSIS [None]
  - ABORTION SPONTANEOUS [None]
